FAERS Safety Report 8053209-2 (Version None)
Quarter: 2012Q1

REPORT INFORMATION
  Report Type: 
  Country: None (occurrence: None)
  Receive Date: 20120118
  Receipt Date: 20120116
  Transmission Date: 20120608
  Serious: Yes (Hospitalization)
  Sender: FDA-Public Use
  Company Number: BG-ROCHE-687454

PATIENT
  Sex: Female
  Weight: 56 kg

DRUGS (8)
  1. DOCETAXEL [Suspect]
     Indication: BREAST CANCER
     Dosage: DOSE LEVEL: 60 MG/M^2, LAST DOSE PRIOR TO SAE: 19 FEBRUARY 2010, DOSE FORM: VIALS.
     Route: 042
  2. CARBOPLATIN [Suspect]
     Indication: BREAST CANCER
     Dosage: DOSE LEVEL: 05 AUC, LAST DOSE PRIOR TO SAE: 19 FEBRUARY 2010. DOSE FORM: VIALS.
     Route: 042
  3. AVASTIN [Suspect]
     Indication: BREAST CANCER
     Dosage: DOSE LEVEL: 15 MG/KG, LAST DOSE PRIOR TO SAE: 19 FEBRUARY 2010. DOSAE FORM: VIALS.
     Route: 042
  4. HERCEPTIN [Suspect]
     Dosage: MAINTENANCE DOSE,DOSE LEVEL: 06 MG/KG, LAST DOSE PRIOR TO SAE: 19 FEBRUARY 2010, DOSE FORM: VIALS.
     Route: 042
  5. FUROSEMIDE [Concomitant]
     Dates: start: 20100222, end: 20100224
  6. ETHAMSYLATE [Concomitant]
     Dosage: DRUG REPORTED: DECYNON.
  7. HERCEPTIN [Suspect]
     Indication: BREAST CANCER
     Dosage: LOADING DOSE.
     Route: 042
  8. SOLU-MEDROL [Concomitant]

REACTIONS (1)
  - TUBULOINTERSTITIAL NEPHRITIS [None]
